FAERS Safety Report 11058510 (Version 1)
Quarter: 2015Q2

REPORT INFORMATION
  Report Type: Spontaneous
  Country: US (occurrence: None)
  Receive Date: 20150422
  Receipt Date: 20150422
  Transmission Date: 20150821
  Serious: No
  Sender: FDA-Public Use
  Company Number: None

PATIENT
  Age: 63 Year
  Sex: Female
  Weight: 95.26 kg

DRUGS (1)
  1. TROKENDI [Suspect]
     Active Substance: TOPIRAMATE
     Indication: MIGRAINE PROPHYLAXIS
     Dosage: TAKEN BY MOUTH, SAMPLE PACKS, AT BEDTIME
     Route: 048
     Dates: start: 20150325, end: 20150417

REACTIONS (1)
  - Productive cough [None]

NARRATIVE: CASE EVENT DATE: 20150421
